FAERS Safety Report 19905663 (Version 2)
Quarter: 2021Q4

REPORT INFORMATION
  Report Type: Spontaneous
  Country: US (occurrence: US)
  Receive Date: 20210930
  Receipt Date: 20211025
  Transmission Date: 20220303
  Serious: Yes (Other)
  Sender: FDA-Public Use
  Company Number: US-SUNOVION-2021SUN003704

PATIENT
  Age: 54 Year
  Sex: Male

DRUGS (4)
  1. APTIOM [Suspect]
     Active Substance: ESLICARBAZEPINE ACETATE
     Indication: Epilepsy
     Dosage: 800 MG, BID
     Route: 048
  2. APTIOM [Suspect]
     Active Substance: ESLICARBAZEPINE ACETATE
     Dosage: 800 MG, QD
     Route: 048
     Dates: start: 20210905, end: 20210912
  3. APTIOM [Suspect]
     Active Substance: ESLICARBAZEPINE ACETATE
     Dosage: 1200 MG, QD
     Route: 048
  4. APTIOM [Suspect]
     Active Substance: ESLICARBAZEPINE ACETATE
     Dosage: 1600 MG, QD
     Route: 048

REACTIONS (3)
  - Seizure [Recovered/Resolved]
  - Anxiety [Recovered/Resolved]
  - Incorrect dose administered [Unknown]

NARRATIVE: CASE EVENT DATE: 20210905
